FAERS Safety Report 12989593 (Version 2)
Quarter: 2023Q4

REPORT INFORMATION
  Report Type: Report from Study
  Country: US (occurrence: None)
  Receive Date: 20161201
  Receipt Date: 20231016
  Transmission Date: 20240110
  Serious: Yes (Hospitalization)
  Sender: FDA-Public Use
  Company Number: US-ROCHE-1849108

PATIENT
  Age: 57 Year
  Sex: Male

DRUGS (2)
  1. COBIMETINIB [Suspect]
     Active Substance: COBIMETINIB
     Indication: Metastatic malignant melanoma
     Dosage: DATE OF MOST RECENT DOSE PRIOR TO THE EVENT ONSET: 20/SEP/2016
     Route: 048
     Dates: start: 20160908
  2. VEMURAFENIB [Suspect]
     Active Substance: VEMURAFENIB
     Indication: Metastatic malignant melanoma
     Dosage: DATE OF MOST RECENT DOSE PRIOR TO THE EVENT ONSET: 20/SEP/2016
     Route: 048
     Dates: start: 20160908

REACTIONS (2)
  - Drug reaction with eosinophilia and systemic symptoms [Unknown]
  - Acute kidney injury [Recovered/Resolved]

NARRATIVE: CASE EVENT DATE: 20160921
